FAERS Safety Report 10444967 (Version 1)
Quarter: 2014Q3

REPORT INFORMATION
  Report Type: Report from Study
  Country: BR (occurrence: BR)
  Receive Date: 20140910
  Receipt Date: 20140910
  Transmission Date: 20150326
  Serious: Yes (Hospitalization)
  Sender: FDA-Public Use
  Company Number: BR-TEVA-506465ISR

PATIENT
  Age: 47 Year
  Sex: Female
  Weight: 81 kg

DRUGS (5)
  1. ARASID [Concomitant]
     Indication: EPILEPSY
     Dosage: 50 MILLIGRAM DAILY;
     Route: 048
  2. COPAXONE [Suspect]
     Active Substance: GLATIRAMER ACETATE
     Indication: MULTIPLE SCLEROSIS
     Dosage: 20 MILLIGRAM DAILY;
     Route: 058
     Dates: start: 20140111, end: 201407
  3. GLICLAZIDE [Concomitant]
     Active Substance: GLICLAZIDE
     Indication: DIABETES MELLITUS
     Dosage: 60 MILLIGRAM DAILY;
     Route: 048
  4. PAMELOR [Concomitant]
     Active Substance: NORTRIPTYLINE HYDROCHLORIDE
     Dosage: 10 MILLIGRAM DAILY;
     Route: 048
  5. GABANEURIN [Concomitant]
     Dosage: 300 MILLIGRAM DAILY;
     Route: 048

REACTIONS (8)
  - Dyspnoea [Recovered/Resolved]
  - Back pain [Recovered/Resolved]
  - Skin mass [Recovered/Resolved]
  - Hypersensitivity [Recovered/Resolved]
  - Neck pain [Recovered/Resolved]
  - Injection site erythema [Recovered/Resolved]
  - Chest pain [Recovered/Resolved]
  - Drug administered at inappropriate site [Recovered/Resolved]

NARRATIVE: CASE EVENT DATE: 20140705
